FAERS Safety Report 18087175 (Version 1)
Quarter: 2020Q3

REPORT INFORMATION
  Report Type: Spontaneous
  Country: US (occurrence: US)
  Receive Date: 20200729
  Receipt Date: 20200729
  Transmission Date: 20201103
  Serious: Yes (Hospitalization, Other)
  Sender: FDA-Public Use
  Company Number: US-STRIDES ARCOLAB LIMITED-2020SP005402

PATIENT
  Age: 21 Year
  Sex: Male

DRUGS (7)
  1. TACROLIMUS. [Suspect]
     Active Substance: TACROLIMUS
     Dosage: UNK, MAINTENANCE
     Route: 065
  2. PREDNISOLONE. [Suspect]
     Active Substance: PREDNISOLONE
     Indication: LIVER TRANSPLANT
     Dosage: UNK
     Route: 065
  3. MYCOPHENOLATE MOFETIL. [Suspect]
     Active Substance: MYCOPHENOLATE MOFETIL
     Indication: LIVER TRANSPLANT
     Dosage: UNK, INDUCTION
     Route: 065
  4. MYCOPHENOLATE MOFETIL. [Suspect]
     Active Substance: MYCOPHENOLATE MOFETIL
     Dosage: UNK, MAINTENANCE
     Route: 065
  5. PENTAMIDINE [Concomitant]
     Active Substance: PENTAMIDINE
     Indication: ANTIBIOTIC PROPHYLAXIS
     Dosage: UNK
  6. VALGANCICLOVIR. [Concomitant]
     Active Substance: VALGANCICLOVIR
     Indication: ANTIBIOTIC PROPHYLAXIS
     Dosage: UNK
     Route: 065
  7. TACROLIMUS. [Suspect]
     Active Substance: TACROLIMUS
     Indication: LIVER TRANSPLANT
     Dosage: UNK, INDUCTION
     Route: 065

REACTIONS (6)
  - Brain oedema [Recovered/Resolved]
  - Transplant rejection [Unknown]
  - Cerebral toxoplasmosis [Recovered/Resolved]
  - Pyrexia [Recovered/Resolved]
  - Dysarthria [Recovered/Resolved]
  - Facial paresis [Recovered/Resolved]
